FAERS Safety Report 7703349-X (Version None)
Quarter: 2011Q3

REPORT INFORMATION
  Report Type: 
  Country: None (occurrence: None)
  Receive Date: 20110823
  Receipt Date: 20110815
  Transmission Date: 20111222
  Serious: Yes (Death, Hospitalization)
  Sender: FDA-Public Use
  Company Number: US-AMGEN-USASP2011041939

PATIENT
  Age: 82 Year
  Sex: Female
  Weight: 84.354 kg

DRUGS (1)
  1. PROCRIT [Suspect]
     Indication: RENAL FAILURE CHRONIC
     Dosage: 20000 IU, QWK
     Route: 058
     Dates: end: 20110708

REACTIONS (4)
  - FLUID OVERLOAD [None]
  - CARDIAC FAILURE CONGESTIVE [None]
  - DEATH [None]
  - PLEURAL EFFUSION [None]
